FAERS Safety Report 5927528-7 (Version None)
Quarter: 2008Q4

REPORT INFORMATION
  Report Type: 
  Country: None (occurrence: None)
  Receive Date: 20081023
  Receipt Date: 20081014
  Transmission Date: 20090506
  Serious: No
  Sender: FDA-Public Use
  Company Number: BR-ROCHE-591915

PATIENT
  Sex: Female
  Weight: 4 kg

DRUGS (2)
  1. ROACUTAN [Suspect]
     Indication: ACNE
     Dates: start: 20061201, end: 20070701
  2. YASMIN [Concomitant]
     Indication: CONTRACEPTION
     Dosage: MANUFACTURER: SCHERING.
     Dates: end: 20070901

REACTIONS (2)
  - MILIA [None]
  - NORMAL NEWBORN [None]
